FAERS Safety Report 6380256-9 (Version None)
Quarter: 2009Q3

REPORT INFORMATION
  Report Type: 
  Country: None (occurrence: None)
  Receive Date: 20090929
  Receipt Date: 20090917
  Transmission Date: 20100115
  Serious: Yes (Disabling, Other)
  Sender: FDA-Public Use
  Company Number: GB-ROCHE-657436

PATIENT
  Age: 33 Year
  Sex: Female

DRUGS (4)
  1. TAMIFLU [Suspect]
     Indication: DRUG USE FOR UNKNOWN INDICATION
     Route: 065
     Dates: start: 20090814, end: 20090818
  2. AVENOX [Interacting]
     Indication: DRUG USE FOR UNKNOWN INDICATION
     Dosage: DOSE: 6 MILLION IU WEEKLY
     Route: 065
     Dates: start: 20070101
  3. TOLTERODINE TARTRATE [Concomitant]
  4. MARVELON [Concomitant]

REACTIONS (2)
  - HEADACHE [None]
  - PANIC ATTACK [None]
